FAERS Safety Report 6244138-5 (Version None)
Quarter: 2009Q2

REPORT INFORMATION
  Report Type: 
  Country: None (occurrence: None)
  Receive Date: 20090625
  Receipt Date: 20090611
  Transmission Date: 20091009
  Serious: Yes (Other)
  Sender: FDA-Public Use
  Company Number: GB-RANBAXY-2009RR-24933

PATIENT
  Sex: Female

DRUGS (1)
  1. METFORMIN [Suspect]
     Dosage: 850 MG, UNK
     Route: 048

REACTIONS (3)
  - DYSGEUSIA [None]
  - HYPOGLYCAEMIA [None]
  - MALAISE [None]
